FAERS Safety Report 7381336-1 (Version None)
Quarter: 2011Q1

REPORT INFORMATION
  Report Type: 
  Country: None (occurrence: None)
  Receive Date: 20110321
  Receipt Date: 20110317
  Transmission Date: 20110831
  Serious: Yes (Death, Hospitalization)
  Sender: FDA-Public Use
  Company Number: 2011SP002856

PATIENT
  Age: 71 Year
  Sex: Male
  Weight: 95 kg

DRUGS (3)
  1. TEMODAL [Suspect]
     Indication: NEOPLASM MALIGNANT
     Dosage: 260 MG;
     Dates: start: 20101222, end: 20110111
  2. TEMODAL [Suspect]
     Indication: NEOPLASM RECURRENCE
     Dosage: 260 MG;
     Dates: start: 20101222, end: 20110111
  3. TEMODAL [Suspect]
     Indication: GLIOBLASTOMA
     Dosage: 260 MG;
     Dates: start: 20101222, end: 20110111

REACTIONS (5)
  - CARDIAC FAILURE [None]
  - CIRCULATORY COLLAPSE [None]
  - WOUND SECRETION [None]
  - WOUND INFECTION [None]
  - WOUND DEHISCENCE [None]
